FAERS Safety Report 6021555-X (Version None)
Quarter: 2008Q4

REPORT INFORMATION
  Report Type: 
  Country: None (occurrence: None)
  Receive Date: 20081229
  Receipt Date: 20081217
  Transmission Date: 20090506
  Serious: Yes (Other)
  Sender: FDA-Public Use
  Company Number: PHHY2008DE32440

PATIENT
  Sex: Female

DRUGS (1)
  1. VOLTAREN [Suspect]
     Dosage: AS NEEDED
     Route: 048

REACTIONS (3)
  - EYE HAEMORRHAGE [None]
  - IMPAIRED HEALING [None]
  - OCULAR HYPERAEMIA [None]
